FAERS Safety Report 8120937-X (Version None)
Quarter: 2011Q4

REPORT INFORMATION
  Report Type: 
  Country: None (occurrence: None)
  Receive Date: 20111227
  Receipt Date: 20110908
  Transmission Date: 20120403
  Serious: No
  Sender: FDA-Public Use
  Company Number: PHHY2011US34730

PATIENT
  Age: 37 Year
  Sex: Female

DRUGS (2)
  1. GILENYA [Suspect]
     Indication: MULTIPLE SCLEROSIS
     Dosage: 0.5 MG, DAILY, ORAL, 0.5 MG, DAILY, ORAL
     Route: 048
     Dates: start: 20110314
  2. GILENYA [Suspect]
     Indication: MULTIPLE SCLEROSIS
     Dosage: 0.5 MG, DAILY, ORAL, 0.5 MG, DAILY, ORAL
     Route: 048
     Dates: start: 20110803

REACTIONS (3)
  - FALL [None]
  - VISUAL IMPAIRMENT [None]
  - LIMB INJURY [None]
